FAERS Safety Report 5402491-6 (Version None)
Quarter: 2007Q3

REPORT INFORMATION
  Report Type: 
  Country: None (occurrence: None)
  Receive Date: 20070801
  Receipt Date: 20060727
  Transmission Date: 20080115
  Serious: No
  Sender: FDA-Public Use
  Company Number: A0613786A

PATIENT
  Age: 43 Year
  Sex: Female

DRUGS (4)
  1. IMITREX [Suspect]
     Indication: MIGRAINE
     Dosage: 50MG AS REQUIRED
     Route: 048
  2. ADDERALL 10 [Concomitant]
  3. NASONEX [Concomitant]
  4. ALLEGRA [Concomitant]

REACTIONS (1)
  - INSOMNIA [None]
